FAERS Safety Report 9943825 (Version 1)
Quarter: 2014Q1

REPORT INFORMATION
  Report Type: Spontaneous
  Country: TR (occurrence: TR)
  Receive Date: 20140303
  Receipt Date: 20140303
  Transmission Date: 20141002
  Serious: Yes (Other)
  Sender: FDA-Public Use
  Company Number: TR-BAXTER-2014BAX009505

PATIENT
  Age: 44 Year
  Sex: Male
  Weight: 70 kg

DRUGS (2)
  1. SUPRANE [Suspect]
     Indication: BRAIN OPERATION
     Route: 065
     Dates: start: 20140221, end: 20140221
  2. SUPRANE [Suspect]
     Indication: GENERAL ANAESTHESIA

REACTIONS (1)
  - Carbon dioxide increased [Recovered/Resolved]
